FAERS Safety Report 14183154 (Version 1)
Quarter: 2017Q4

REPORT INFORMATION
  Report Type: Report from Study
  Country: IN (occurrence: IN)
  Receive Date: 20171113
  Receipt Date: 20171113
  Transmission Date: 20180321
  Serious: Yes (Death)
  Sender: FDA-Public Use
  Company Number: IN-JNJFOC-20171112464

PATIENT
  Age: 75 Year
  Sex: Male

DRUGS (1)
  1. IXAROLA [Suspect]
     Active Substance: RIVAROXABAN
     Indication: PULSE ABNORMAL
     Route: 048
     Dates: start: 20170610

REACTIONS (4)
  - Asthenia [Fatal]
  - Pulse abnormal [Fatal]
  - Off label use [Unknown]
  - Product use in unapproved indication [Unknown]

NARRATIVE: CASE EVENT DATE: 20170726
